FAERS Safety Report 5159595-5 (Version None)
Quarter: 2006Q4

REPORT INFORMATION
  Report Type: 
  Country: None (occurrence: None)
  Receive Date: 20061120
  Receipt Date: 20061109
  Transmission Date: 20070319
  Serious: Yes (Hospitalization, Other)
  Sender: FDA-Public Use
  Company Number: S06-USA-04078-01

PATIENT
  Age: 81 Year
  Sex: Female

DRUGS (6)
  1. THYROID TAB [Suspect]
     Indication: HORMONE REPLACEMENT THERAPY
     Dosage: 90 MG QD PO
     Route: 048
     Dates: start: 19760101, end: 20061004
  2. THYROID TAB [Suspect]
     Indication: HORMONE REPLACEMENT THERAPY
     Dosage: 90 MG QD PO
     Route: 048
     Dates: start: 20061006
  3. ATENOLOL [Concomitant]
  4. ATACAND [Concomitant]
  5. FLOVENT [Concomitant]
  6. NASACORT [Concomitant]

REACTIONS (5)
  - ASTHENIA [None]
  - BENIGN NEOPLASM OF ADRENAL GLAND [None]
  - BLOOD CATECHOLAMINES INCREASED [None]
  - BLOOD PRESSURE INCREASED [None]
  - TREMOR [None]
